FAERS Safety Report 18503115 (Version 1)
Quarter: 2020Q4

REPORT INFORMATION
  Report Type: Spontaneous
  Country: DE (occurrence: DE)
  Receive Date: 20201113
  Receipt Date: 20201113
  Transmission Date: 20210114
  Serious: Yes (Hospitalization)
  Sender: FDA-Public Use
  Company Number: DE-TEVA-2020-DE-1847639

PATIENT
  Age: 68 Year
  Sex: Female

DRUGS (9)
  1. HYDROMORPHON [Concomitant]
     Active Substance: HYDROMORPHONE
     Dosage: 2 MG, 1-0-1-0
  2. PANTOPRAZOL [Concomitant]
     Active Substance: PANTOPRAZOLE SODIUM
     Dosage: 80 MILLIGRAM DAILY; 40 MG, 1-0-1-0
  3. PACLITAXEL. [Suspect]
     Active Substance: PACLITAXEL
     Dosage: NK MG, LAST 25.07.2020
     Route: 065
     Dates: end: 20200725
  4. METAMIZOL [Concomitant]
     Active Substance: METAMIZOLE SODIUM
     Dosage: 160 GTT DAILY; 40 GTT, 1-1-1-1
  5. GEMCITABINE. [Suspect]
     Active Substance: GEMCITABINE
     Dosage: NK MG, LAST 25072020
     Route: 065
  6. LAXOBERAL 7,5MG [Concomitant]
     Dosage: 12 GTT DAILY; 12 GTT, 0-0-1-0
  7. MCP [Concomitant]
     Active Substance: METOCLOPRAMIDE HYDROCHLORIDE
     Dosage: 30 MILLIGRAM DAILY; 10 MG, 1-1-1-0
  8. NUTRIFLEX OMEGA PLUS [Concomitant]
     Active Substance: AMINO ACIDS\DEXTROSE\ELECTROLYTES NOS\SOYBEAN OIL
     Dosage: NK MG, OVERNIGHT
  9. HYDROMORPHON [Concomitant]
     Active Substance: HYDROMORPHONE
     Dosage: 1.3 MG, 6X

REACTIONS (5)
  - Localised infection [Unknown]
  - Pyrexia [Unknown]
  - Dysuria [Unknown]
  - General physical health deterioration [Unknown]
  - Oliguria [Unknown]
